FAERS Safety Report 13106754 (Version 1)
Quarter: 2017Q1

REPORT INFORMATION
  Report Type: Spontaneous
  Country: FR (occurrence: FR)
  Receive Date: 20170111
  Receipt Date: 20170111
  Transmission Date: 20170428
  Serious: Yes (Other)
  Sender: FDA-Public Use
  Company Number: FR-TEVA-726421ROM

PATIENT
  Age: 3 Month
  Sex: Male
  Weight: 5.5 kg

DRUGS (1)
  1. TRAMADOL PARACETAMOL TEVA 37.5 MG/ 325 MG [Suspect]
     Active Substance: ACETAMINOPHEN\TRAMADOL
     Dosage: 1 DOSAGE FORM = 325 MG PARACETAMOL  + 37.5 MG TRAMADOL
     Route: 063
     Dates: start: 20161118

REACTIONS (3)
  - Hypotonia [Recovered/Resolved]
  - Somnolence [Recovered/Resolved]
  - Exposure during breast feeding [Unknown]

NARRATIVE: CASE EVENT DATE: 20161118
